FAERS Safety Report 5368781-0 (Version None)
Quarter: 2007Q2

REPORT INFORMATION
  Report Type: 
  Country: None (occurrence: None)
  Receive Date: 20070621
  Receipt Date: 20070621
  Transmission Date: 20071010
  Serious: Yes (Hospitalization)
  Sender: FDA-Public Use
  Company Number: None

PATIENT
  Sex: Female
  Weight: 46.4 kg

DRUGS (1)
  1. TEMOZOLOMIDE [Suspect]
     Dosage: 770 MG

REACTIONS (4)
  - HEADACHE [None]
  - NAUSEA [None]
  - SUBDURAL HAEMATOMA [None]
  - VOMITING [None]
